FAERS Safety Report 24982606 (Version 1)
Quarter: 2025Q1

REPORT INFORMATION
  Report Type: Report from Study
  Country: US (occurrence: US)
  Receive Date: 20250218
  Receipt Date: 20250218
  Transmission Date: 20250408
  Serious: Yes (Other)
  Sender: ALEXION PHARMACEUTICALS
  Company Number: US-ASTRAZENECA-202502USA009583US

PATIENT

DRUGS (2)
  1. STRENSIQ [Suspect]
     Active Substance: ASFOTASE ALFA
     Route: 065
  2. K PHOS NEUTRAL [Suspect]
     Active Substance: POTASSIUM PHOSPHATE, MONOBASIC\SODIUM PHOSPHATE, DIBASIC, ANHYDROUS\SODIUM PHOSPHATE, MONOBASIC, MON
     Route: 065

REACTIONS (8)
  - Neuropathy peripheral [Unknown]
  - Arrhythmia [Unknown]
  - Diarrhoea [Unknown]
  - Abdominal discomfort [Unknown]
  - Rash [Unknown]
  - Haematoma [Unknown]
  - Joint range of motion decreased [Unknown]
  - Musculoskeletal stiffness [Unknown]
